FAERS Safety Report 8289612-5 (Version None)
Quarter: 2012Q2

REPORT INFORMATION
  Report Type: 
  Country: None (occurrence: None)
  Receive Date: 20120417
  Receipt Date: 20120406
  Transmission Date: 20120825
  Serious: Yes (Hospitalization)
  Sender: FDA-Public Use
  Company Number: JP-VERTEX PHARMACEUTICALS INC.-AE-2012-004896

PATIENT
  Age: 70 Year
  Sex: Female

DRUGS (7)
  1. TELAVIC (TELAPREVIR) [Suspect]
     Indication: HEPATITIS C
     Route: 048
     Dates: start: 20120326, end: 20120403
  2. PEG-INTRON [Concomitant]
     Route: 051
     Dates: start: 20120402, end: 20120403
  3. DEPAS [Concomitant]
     Route: 048
  4. PEG-INTRON [Concomitant]
     Indication: HEPATITIS C
     Route: 051
     Dates: start: 20120326
  5. AMLODIPINE [Concomitant]
     Route: 048
     Dates: end: 20120328
  6. RIBAVIRIN [Concomitant]
     Indication: HEPATITIS C
     Route: 048
     Dates: start: 20120326, end: 20120328
  7. RIBAVIRIN [Concomitant]
     Route: 048
     Dates: start: 20120329, end: 20120403

REACTIONS (2)
  - PLATELET COUNT DECREASED [None]
  - RENAL IMPAIRMENT [None]
